FAERS Safety Report 23886129 (Version 1)
Quarter: 2024Q2

REPORT INFORMATION
  Report Type: Spontaneous
  Country: US (occurrence: US)
  Receive Date: 20240522
  Receipt Date: 20240522
  Transmission Date: 20240716
  Serious: Yes (Death)
  Sender: FDA-Public Use
  Company Number: US-JNJFOC-20240543179

PATIENT
  Age: 71 Year
  Sex: Male

DRUGS (17)
  1. RYBREVANT [Suspect]
     Active Substance: AMIVANTAMAB-VMJW
     Indication: Non-small cell lung cancer
     Route: 065
  2. XGEVA [Concomitant]
     Active Substance: DENOSUMAB
     Dates: start: 20210428
  3. OSIMERTINIB [Concomitant]
     Active Substance: OSIMERTINIB
  4. HYDROCORTISONE [Concomitant]
     Active Substance: HYDROCORTISONE
  5. HYDROCORTISONE [Concomitant]
     Active Substance: HYDROCORTISONE
  6. SYNTHROID [Concomitant]
     Active Substance: LEVOTHYROXINE SODIUM
  7. LEVOFLOXACIN [Concomitant]
     Active Substance: LEVOFLOXACIN
  8. PROCHLORPERAZINE [Concomitant]
     Active Substance: PROCHLORPERAZINE
  9. PROCHLORPERAZINE [Concomitant]
     Active Substance: PROCHLORPERAZINE
  10. DEXAMETHASONE [Concomitant]
     Active Substance: DEXAMETHASONE
  11. FOLIC ACID [Concomitant]
     Active Substance: FOLIC ACID
  12. OLANZAPINE [Concomitant]
     Active Substance: OLANZAPINE
  13. ONDANSETRON [Concomitant]
     Active Substance: ONDANSETRON
  14. OXYCODONE [Concomitant]
     Active Substance: OXYCODONE\OXYCODONE HYDROCHLORIDE
  15. TRAZODONE [Concomitant]
     Active Substance: TRAZODONE HYDROCHLORIDE
  16. VITAMIN D2 [Concomitant]
     Active Substance: ERGOCALCIFEROL
  17. ZOLPIDEM [Concomitant]
     Active Substance: ZOLPIDEM TARTRATE

REACTIONS (3)
  - Death [Fatal]
  - Infusion related reaction [Unknown]
  - Diarrhoea [Unknown]
